FAERS Safety Report 4588485-1 (Version None)
Quarter: 2005Q1

REPORT INFORMATION
  Report Type: 
  Country: None (occurrence: None)
  Receive Date: 20050216
  Receipt Date: 20050131
  Transmission Date: 20050727
  Serious: Yes (Other)
  Sender: FDA-Public Use
  Company Number: USA031254515

PATIENT
  Age: 84 Year
  Sex: Female

DRUGS (4)
  1. FORTEO [Suspect]
     Indication: BONE DISORDER
     Dates: start: 20031204
  2. PREVACID [Concomitant]
  3. MULTIVITAMIN [Concomitant]
  4. OSCAL (CALCIUM CARBONATE) [Concomitant]

REACTIONS (6)
  - BACK PAIN [None]
  - BLOOD ALKALINE PHOSPHATASE INCREASED [None]
  - HYPERTENSION [None]
  - OSTEITIS DEFORMANS [None]
  - PHARMACEUTICAL PRODUCT COMPLAINT [None]
  - PHARYNGOLARYNGEAL PAIN [None]
